FAERS Safety Report 21715967 (Version 1)
Quarter: 2022Q4

REPORT INFORMATION
  Report Type: Spontaneous
  Country: US (occurrence: None)
  Receive Date: 20221209
  Receipt Date: 20221209
  Transmission Date: 20230112
  Serious: Yes (Hospitalization)
  Sender: FDA-Public Use
  Company Number: None

PATIENT
  Age: 62 Year
  Sex: Female
  Weight: 74.62 kg

DRUGS (18)
  1. ANAGRELIDE [Suspect]
     Active Substance: ANAGRELIDE
     Indication: Breast cancer female
     Dosage: FREQUENCY : TWICE A DAY;?
     Route: 048
  2. ANASTROZOLE [Concomitant]
     Active Substance: ANASTROZOLE
  3. ASPIRIN [Concomitant]
     Active Substance: ASPIRIN
  4. GABAPENTIN [Concomitant]
     Active Substance: GABAPENTIN
  5. HYDROXYCHLOROQUINE SULFATE [Concomitant]
     Active Substance: HYDROXYCHLOROQUINE SULFATE
  6. HYDROXYZINE [Concomitant]
     Active Substance: HYDROXYZINE HYDROCHLORIDE
  7. LEVOTHYROXINE [Concomitant]
     Active Substance: LEVOTHYROXINE
  8. LIDOCAINE [Concomitant]
     Active Substance: LIDOCAINE
  9. LORAZEPAM [Concomitant]
     Active Substance: LORAZEPAM
  10. LYRICA [Concomitant]
     Active Substance: PREGABALIN
  11. MEDROL [Concomitant]
     Active Substance: METHYLPREDNISOLONE
  12. METHOTREXATE [Concomitant]
     Active Substance: METHOTREXATE
  13. VITAMINS [Concomitant]
     Active Substance: VITAMINS
  14. ONDANSETRON [Concomitant]
     Active Substance: ONDANSETRON
  15. PREDNISONE [Concomitant]
     Active Substance: PREDNISONE
  16. SPIRIVA [Concomitant]
     Active Substance: TIOTROPIUM BROMIDE MONOHYDRATE
  17. VALACYCLOVIR [Concomitant]
     Active Substance: VALACYCLOVIR HYDROCHLORIDE
  18. VITAMIN D3 [Concomitant]
     Active Substance: CHOLECALCIFEROL

REACTIONS (2)
  - Rectal haemorrhage [None]
  - Therapy interrupted [None]
